FAERS Safety Report 8481989-0 (Version None)
Quarter: 2012Q3

REPORT INFORMATION
  Report Type: 
  Country: None (occurrence: None)
  Receive Date: 20120702
  Receipt Date: 20120625
  Transmission Date: 20120928
  Serious: Yes (Other)
  Sender: FDA-Public Use
  Company Number: PHHY2012DE050985

PATIENT
  Sex: Male

DRUGS (6)
  1. CLOZAPINE [Suspect]
     Indication: PSYCHOTIC DISORDER
     Dates: start: 20030101
  2. INVEGA [Concomitant]
     Indication: SCHIZOPHRENIA, PARANOID TYPE
     Dosage: 1 DF, QD
     Dates: start: 20110501
  3. CLOZAPINE [Suspect]
     Dosage: 125 MG, UNK
  4. CLOZAPINE [Suspect]
     Dosage: 175 MG, QD (PER DAY)
     Route: 048
  5. DIAZEPAM [Concomitant]
     Dosage: 5 MG, TID
  6. CLOZAPINE [Suspect]
     Dosage: 125 MG, DAILY
     Route: 048

REACTIONS (5)
  - METABOLIC SYNDROME [None]
  - CARDIOVASCULAR INSUFFICIENCY [None]
  - SOMNOLENCE [None]
  - DIABETES MELLITUS [None]
  - POLYDIPSIA [None]
